FAERS Safety Report 8181178-3 (Version None)
Quarter: 2012Q1

REPORT INFORMATION
  Report Type: 
  Country: None (occurrence: None)
  Receive Date: 20120302
  Receipt Date: 20120224
  Transmission Date: 20120608
  Serious: Yes (Death)
  Sender: FDA-Public Use
  Company Number: US-GLAXOSMITHKLINE-A0968084A

PATIENT
  Age: 33 Year
  Sex: Female

DRUGS (2)
  1. LAMICTAL [Suspect]
     Indication: PRODUCT USED FOR UNKNOWN INDICATION
  2. WELLBUTRIN [Suspect]
     Indication: PRODUCT USED FOR UNKNOWN INDICATION

REACTIONS (14)
  - COMPLETED SUICIDE [None]
  - DEPRESSION [None]
  - AGGRESSION [None]
  - DRUG PRESCRIBING ERROR [None]
  - ADVERSE EVENT [None]
  - PERFORMANCE STATUS DECREASED [None]
  - SUICIDAL IDEATION [None]
  - ANGER [None]
  - DRUG DISPENSING ERROR [None]
  - DRUG WITHDRAWAL SYNDROME [None]
  - AVOIDANT PERSONALITY DISORDER [None]
  - MANIA [None]
  - MULTIPLE DRUG OVERDOSE [None]
  - SELF-INJURIOUS IDEATION [None]
